FAERS Safety Report 14251470 (Version 2)
Quarter: 2017Q4

REPORT INFORMATION
  Report Type: Report from Study
  Country: AR (occurrence: AR)
  Receive Date: 20171205
  Receipt Date: 20171219
  Transmission Date: 20180321
  Serious: Yes (Other)
  Sender: FDA-Public Use
  Company Number: PHHY2017AR143744

PATIENT
  Sex: Female

DRUGS (1)
  1. DIOVAN [Suspect]
     Active Substance: VALSARTAN
     Indication: HYPERTENSION
     Dosage: 160 (UNITS NOT PROVIDED), QD (FROM 10 YEARS AGO APPROXIMATELY)
     Route: 065

REACTIONS (12)
  - Bleeding varicose vein [Recovered/Resolved]
  - Urinary tract infection [Recovering/Resolving]
  - Tonsillitis [Recovered/Resolved]
  - Nervousness [Recovering/Resolving]
  - Injury [Unknown]
  - Varicose vein [Unknown]
  - Stress [Recovered/Resolved]
  - Nasopharyngitis [Recovered/Resolved]
  - Hypophagia [Unknown]
  - Haemorrhage [Unknown]
  - Anaemia [Recovered/Resolved]
  - Emotional disorder [Unknown]
